FAERS Safety Report 18401780 (Version 6)
Quarter: 2021Q3

REPORT INFORMATION
  Report Type: Report from Study
  Country: US (occurrence: US)
  Receive Date: 20201019
  Receipt Date: 20210701
  Transmission Date: 20211014
  Serious: Yes (Hospitalization)
  Sender: FDA-Public Use
  Company Number: NVSC2020US277751

PATIENT
  Age: 63 Year
  Sex: Female
  Weight: 76.3 kg

DRUGS (160)
  1. MORPHINE [Suspect]
     Active Substance: MORPHINE
     Indication: BACK PAIN
     Dosage: 40 MG, QD
     Route: 048
     Dates: start: 20200724
  2. PROTONIX [Concomitant]
     Active Substance: PANTOPRAZOLE SODIUM
     Indication: VOMITING
     Dosage: 40 MG, BEFORE BREAKFAST
     Route: 048
     Dates: start: 20201004, end: 20201005
  3. OMNICEF [Concomitant]
     Active Substance: CEFDINIR
     Indication: INFECTION PROPHYLAXIS
     Dosage: 300 MG, BID
     Route: 048
     Dates: start: 20200909, end: 20201023
  4. MS CONTIN [Concomitant]
     Active Substance: MORPHINE SULFATE
     Dosage: 15 MG, Q4H PRN
     Route: 048
     Dates: start: 20201012, end: 20201013
  5. POTASSIUM CHLORIDE. [Concomitant]
     Active Substance: POTASSIUM CHLORIDE
     Indication: MINERAL SUPPLEMENTATION
     Dosage: 10 MEQ/1000 ML, NS CONT
     Route: 042
     Dates: start: 20200724, end: 20200725
  6. ZOFRAN [Concomitant]
     Active Substance: ONDANSETRON HYDROCHLORIDE
     Indication: NAUSEA
     Dosage: 8 MG, QD
     Route: 042
     Dates: start: 20200707, end: 20200707
  7. ATIVAN [Concomitant]
     Active Substance: LORAZEPAM
     Dosage: 0.5 MG, 2?3 X DAILY PRN
     Route: 042
     Dates: start: 20200722, end: 20200804
  8. ATIVAN [Concomitant]
     Active Substance: LORAZEPAM
     Dosage: 0.5 MG, NIGHTY AT BEDTIME
     Route: 048
     Dates: start: 20201014, end: 20201015
  9. CEPHALEXIN. [Concomitant]
     Active Substance: CEPHALEXIN
     Indication: ARTHRALGIA
     Dosage: 500 MG, 4X DAILY
     Route: 048
     Dates: start: 20201005, end: 20201012
  10. HEPARIN [Concomitant]
     Active Substance: HEPARIN SODIUM
     Indication: CATHETER MANAGEMENT
     Dosage: 500 UNITS, PRN
     Route: 042
     Dates: start: 20200727, end: 20200727
  11. HEPARIN [Concomitant]
     Active Substance: HEPARIN SODIUM
     Dosage: 500 UNITS PRN
     Route: 042
     Dates: start: 20200820, end: 20200820
  12. CLINDAMYCIN. [Concomitant]
     Active Substance: CLINDAMYCIN
     Indication: ARTHRALGIA
     Dosage: 150 MG, 4X DAILY
     Route: 048
     Dates: start: 20201001, end: 20201004
  13. LOVENOX [Concomitant]
     Active Substance: ENOXAPARIN SODIUM
     Dosage: 40 MG, NIGHTY
     Route: 058
     Dates: start: 20200811, end: 20200813
  14. CYCLOPHOSPHAMIDE. [Concomitant]
     Active Substance: CYCLOPHOSPHAMIDE
     Dosage: 490 MG, ONCE/SINGLE
     Route: 065
     Dates: start: 20200903, end: 20200903
  15. TOPROL XL [Concomitant]
     Active Substance: METOPROLOL SUCCINATE
     Indication: AORTIC ANEURYSM
     Dosage: 25 MG, QD
     Route: 048
     Dates: start: 2016, end: 20200806
  16. NACL [Concomitant]
     Active Substance: SODIUM CHLORIDE
     Indication: CONSTIPATION
     Dosage: 1000 ML, DAILYX3
     Route: 042
     Dates: start: 20200722, end: 20200722
  17. NACL [Concomitant]
     Active Substance: SODIUM CHLORIDE
     Indication: ELECTROLYTE SUBSTITUTION THERAPY
     Dosage: 1000 ML, QD
     Route: 042
     Dates: start: 20200721, end: 20200721
  18. FLUDARABINE [Concomitant]
     Active Substance: FLUDARABINE PHOSPHATE
     Indication: CHEMOTHERAPY
     Dosage: 50 MG, ONCE/SINGLE
     Route: 042
     Dates: start: 20200722, end: 20200722
  19. FLUDARABINE [Concomitant]
     Active Substance: FLUDARABINE PHOSPHATE
     Dosage: 50 MG, ONCE/SINGLE
     Route: 065
     Dates: start: 20200904, end: 20200904
  20. ROXICODONE [Concomitant]
     Active Substance: OXYCODONE HYDROCHLORIDE
     Indication: BONE PAIN
  21. INSULIN LISPRO [Concomitant]
     Active Substance: INSULIN LISPRO
     Indication: TYPE 2 DIABETES MELLITUS
     Dosage: 0?6 UNITS SLIDING SCALE, 3X DAILY MEALS
     Route: 058
     Dates: start: 20200812, end: 20200812
  22. DIFLUCAN [Concomitant]
     Active Substance: FLUCONAZOLE
     Indication: INFECTION PROPHYLAXIS
     Dosage: 200 MG, QD
     Route: 048
     Dates: start: 20200730, end: 20200806
  23. COLACE [Concomitant]
     Active Substance: DOCUSATE SODIUM
     Indication: CONSTIPATION
     Dosage: 100 MG, PRN
     Route: 048
     Dates: start: 20200707, end: 20200804
  24. MS CONTIN [Concomitant]
     Active Substance: MORPHINE SULFATE
     Indication: BACK PAIN
     Dosage: 15 MG, Q4H PRN
     Route: 048
     Dates: start: 20201002, end: 20201011
  25. POTASSIUM CHLORIDE. [Concomitant]
     Active Substance: POTASSIUM CHLORIDE
     Dosage: 16 MEQ, BID
     Route: 048
     Dates: start: 20201002, end: 20201005
  26. POTASSIUM CHLORIDE. [Concomitant]
     Active Substance: POTASSIUM CHLORIDE
     Dosage: 20 MEQ, TID
     Route: 048
     Dates: start: 20201006, end: 20201014
  27. ZARXIO [Concomitant]
     Active Substance: FILGRASTIM-SNDZ
     Dosage: 300 UG, ONCE/SINGLE
     Route: 058
     Dates: start: 20201006, end: 20201006
  28. SODIUM CHLORIDE. [Concomitant]
     Active Substance: SODIUM CHLORIDE
     Indication: CATHETER MANAGEMENT
     Dosage: UNK
     Route: 065
     Dates: start: 20201002, end: 20201005
  29. SODIUM CHLORIDE. [Concomitant]
     Active Substance: SODIUM CHLORIDE
     Indication: BLOOD CREATININE INCREASED
     Dosage: UNK
     Route: 065
     Dates: start: 20201014, end: 20201016
  30. SODIUM CHLORIDE. [Concomitant]
     Active Substance: SODIUM CHLORIDE
     Indication: NAUSEA
  31. GRANIX [Concomitant]
     Active Substance: TBO-FILGRASTIM
     Dosage: 300 UG, ONCE/SINGLE
     Route: 058
     Dates: start: 20201005, end: 20201005
  32. DULCOLAX NOS [Concomitant]
     Active Substance: BISACODYL OR DOCUSATE SODIUM
     Indication: CONSTIPATION
     Dosage: 15 MG, ONCE/SINGLE
     Route: 048
     Dates: start: 20201004, end: 20201004
  33. ATIVAN [Concomitant]
     Active Substance: LORAZEPAM
     Indication: VOMITING
     Dosage: 1 MG, Q4H PRN
     Route: 042
     Dates: start: 20201004, end: 20201004
  34. VALACYCLOVIR [Concomitant]
     Active Substance: VALACYCLOVIR HYDROCHLORIDE
     Indication: INFECTION PROPHYLAXIS
     Dosage: UNK
     Route: 065
     Dates: start: 20200909, end: 20201104
  35. LOVENOX [Concomitant]
     Active Substance: ENOXAPARIN SODIUM
     Indication: PRODUCT USED FOR UNKNOWN INDICATION
     Dosage: 40 UNK, QD
     Route: 058
     Dates: start: 20200724, end: 20200726
  36. DILAUDID [Concomitant]
     Active Substance: HYDROMORPHONE HYDROCHLORIDE
     Indication: BONE PAIN
  37. NACL [Concomitant]
     Active Substance: SODIUM CHLORIDE
     Dosage: 10 ML, DAILY PRN
     Route: 042
     Dates: start: 20200811, end: 20200813
  38. NACL [Concomitant]
     Active Substance: SODIUM CHLORIDE
     Dosage: 1000 ML, CONT
     Route: 042
     Dates: start: 20201014, end: 20201016
  39. NICOTINE. [Concomitant]
     Active Substance: NICOTINE
     Indication: SMOKING CESSATION THERAPY
     Dosage: 21 MG 24 HR QD 1 PATCH
     Route: 062
     Dates: start: 20200723, end: 20200725
  40. DECADRON [Concomitant]
     Active Substance: DEXAMETHASONE
     Indication: PREMEDICATION
     Dosage: 40 MG, QD
     Route: 048
     Dates: start: 20200724, end: 20200724
  41. DECADRON [Concomitant]
     Active Substance: DEXAMETHASONE
     Dosage: 2 DROPS PER EYE, Q6H FOR 72 HRS POST D/C
     Route: 031
     Dates: start: 20200813, end: 20200816
  42. VALTREX [Concomitant]
     Active Substance: VALACYCLOVIR HYDROCHLORIDE
     Dosage: 500 MG, BID
     Route: 048
     Dates: start: 20200820, end: 20200824
  43. VALTREX [Concomitant]
     Active Substance: VALACYCLOVIR HYDROCHLORIDE
     Dosage: 500 MG, BID
     Route: 048
     Dates: start: 20200909, end: 20201104
  44. CYTARABINE. [Suspect]
     Active Substance: CYTARABINE
     Indication: B-CELL LYMPHOMA
     Dosage: 4000 MG, ONCE/SINGLE
     Route: 042
     Dates: start: 20200725
  45. KEPPRA [Concomitant]
     Active Substance: LEVETIRACETAM
     Indication: PROPHYLAXIS
     Dosage: 500 MG, BID
     Route: 048
     Dates: start: 20200909
  46. SENOKOT?S [Concomitant]
     Active Substance: DOCUSATE SODIUM\SENNOSIDES
     Indication: CONSTIPATION
     Dosage: 8.6?50 MG 1?2 TABLETS PRN
     Route: 048
     Dates: start: 20200909, end: 20201028
  47. LACTULOSE. [Concomitant]
     Active Substance: LACTULOSE
     Indication: CONSTIPATION
     Dosage: 20 G, 3X DAILY PRN
     Route: 048
     Dates: start: 20200912, end: 20201013
  48. MAGNESIUM OXIDE. [Concomitant]
     Active Substance: MAGNESIUM OXIDE
     Indication: HYPOMAGNESAEMIA
     Dosage: 400 MG, BID
     Route: 048
     Dates: start: 20200914, end: 20201025
  49. POTASSIUM CHLORIDE. [Concomitant]
     Active Substance: POTASSIUM CHLORIDE
     Dosage: 20 MEQ, TID
     Route: 048
     Dates: start: 20200914, end: 20201001
  50. ZOFRAN [Concomitant]
     Active Substance: ONDANSETRON HYDROCHLORIDE
     Dosage: 24 MG, QD
     Route: 042
     Dates: start: 20200724, end: 20200724
  51. SODIUM CHLORIDE. [Concomitant]
     Active Substance: SODIUM CHLORIDE
     Indication: FLUID REPLACEMENT
     Dosage: UNK
     Route: 065
     Dates: start: 20200731
  52. ATIVAN [Concomitant]
     Active Substance: LORAZEPAM
     Indication: ANXIETY
     Dosage: 1 MG, QD
     Route: 042
     Dates: start: 20200723, end: 20200723
  53. LOVENOX [Concomitant]
     Active Substance: ENOXAPARIN SODIUM
     Dosage: 40 MG, QD
     Route: 058
     Dates: start: 20200909, end: 20200913
  54. CYCLOPHOSPHAMIDE. [Concomitant]
     Active Substance: CYCLOPHOSPHAMIDE
     Dosage: 490 MG, ONCE/SINGLE
     Route: 065
     Dates: start: 20200904
  55. METHOTREXATE. [Concomitant]
     Active Substance: METHOTREXATE
     Dosage: 12 MG, QD
     Route: 037
     Dates: start: 20200724, end: 20200724
  56. PHENERGAN [Concomitant]
     Active Substance: PROMETHAZINE HYDROCHLORIDE
     Dosage: 12.5 MG, Q6H PRN
     Route: 048
     Dates: start: 20200722, end: 20200804
  57. NACL [Concomitant]
     Active Substance: SODIUM CHLORIDE
     Indication: BLOOD CREATININE INCREASED
     Dosage: 20 MEQ, CONT
     Route: 042
     Dates: start: 20200725, end: 20200727
  58. PLATINOL [Concomitant]
     Active Substance: CISPLATIN
     Indication: CHEMOTHERAPY
     Dosage: 200 MG/1000 ML NS QD
     Route: 042
     Dates: start: 20200724, end: 20200725
  59. DECADRON [Concomitant]
     Active Substance: DEXAMETHASONE
     Dosage: 40 MG, QD
     Route: 048
     Dates: start: 20200725, end: 20200725
  60. DECADRON [Concomitant]
     Active Substance: DEXAMETHASONE
     Dosage: 10 MG, ONCE/SINGLE
     Route: 042
     Dates: start: 20200729, end: 20200729
  61. DECADRON [Concomitant]
     Active Substance: DEXAMETHASONE
     Dosage: 4 MG, BID
     Route: 048
     Dates: start: 20200730, end: 20200815
  62. DECADRON [Concomitant]
     Active Substance: DEXAMETHASONE
     Dosage: 40 MG
     Route: 048
     Dates: start: 20200813, end: 20200813
  63. CEFDINIR. [Concomitant]
     Active Substance: CEFDINIR
     Dosage: 300 MG, Q12H
     Route: 048
     Dates: start: 20200820, end: 20200824
  64. VALTREX [Concomitant]
     Active Substance: VALACYCLOVIR HYDROCHLORIDE
     Indication: INFECTION PROPHYLAXIS
     Dosage: 500 MG, BID
     Route: 048
     Dates: start: 20200730, end: 20200806
  65. INSULIN LISPRO [Concomitant]
     Active Substance: INSULIN LISPRO
     Dosage: 0?6 UNITS SLIDING SCALE, 3X DAILY MEALS
     Route: 058
     Dates: start: 20200812, end: 20200813
  66. SALINE [Concomitant]
     Active Substance: SODIUM CHLORIDE
     Dosage: 5 ML, 4X DAILY BEFORE MEAL AND NIGHTLY
     Route: 048
     Dates: start: 20200909, end: 20200913
  67. SALINE [Concomitant]
     Active Substance: SODIUM CHLORIDE
     Dosage: 5 ML, 4X DAILY BEFORE MEAL AND NIGHTLY
     Route: 048
     Dates: start: 20201002, end: 20201005
  68. SALINE [Concomitant]
     Active Substance: SODIUM CHLORIDE
     Dosage: 5 ML, 4X DAILY BEFORE MEAL AND NIGHTLY
     Route: 048
     Dates: start: 20201014, end: 20201015
  69. PROTONIX [Concomitant]
     Active Substance: PANTOPRAZOLE SODIUM
     Dosage: 40 MG, QD
     Route: 048
     Dates: start: 20201014, end: 20210225
  70. COLACE [Concomitant]
     Active Substance: DOCUSATE SODIUM
     Dosage: 100 MG, PRN
     Route: 048
     Dates: start: 20200915, end: 20201013
  71. POTASSIUM CHLORIDE. [Concomitant]
     Active Substance: POTASSIUM CHLORIDE
     Dosage: 20 MEQ, BID
     Route: 048
     Dates: start: 20200729, end: 20200914
  72. POTASSIUM CHLORIDE. [Concomitant]
     Active Substance: POTASSIUM CHLORIDE
     Dosage: 20 MEQ/50 ML, PRN
     Route: 042
     Dates: start: 20200723, end: 20200725
  73. ZOFRAN [Concomitant]
     Active Substance: ONDANSETRON HYDROCHLORIDE
     Indication: VOMITING
     Dosage: 8 MG, QD
     Route: 042
     Dates: start: 20200714, end: 20200714
  74. ZOFRAN [Concomitant]
     Active Substance: ONDANSETRON HYDROCHLORIDE
     Dosage: 8 MG, Q8H PRN
     Route: 048
     Dates: start: 20200811, end: 20200811
  75. TYLENOL [Concomitant]
     Active Substance: ACETAMINOPHEN
     Indication: PREMEDICATION
     Dosage: 650 MG, ONCE/SINGLE
     Route: 048
     Dates: start: 20200909, end: 20200909
  76. LEVOFLOXACIN. [Concomitant]
     Active Substance: LEVOFLOXACIN
     Indication: MICTURITION URGENCY
  77. PHENERGAN [Concomitant]
     Active Substance: PROMETHAZINE HYDROCHLORIDE
     Indication: VOMITING
     Dosage: 12.5 MG, QD
     Route: 042
     Dates: start: 20200723, end: 20200723
  78. NACL [Concomitant]
     Active Substance: SODIUM CHLORIDE
     Indication: CATHETER MANAGEMENT
     Dosage: 1000 ML, QD
     Route: 042
     Dates: start: 20200723, end: 20200723
  79. NACL [Concomitant]
     Active Substance: SODIUM CHLORIDE
     Indication: TACHYCARDIA
     Dosage: 1000 ML, CONT
     Route: 042
     Dates: start: 20200723, end: 20200724
  80. NACL [Concomitant]
     Active Substance: SODIUM CHLORIDE
     Dosage: 1000 ML, DAILY CONT
     Route: 042
     Dates: start: 20200811, end: 20200813
  81. NACL [Concomitant]
     Active Substance: SODIUM CHLORIDE
     Dosage: 1000 ML, DAILY CONT
     Route: 042
     Dates: start: 20200902, end: 20200904
  82. NACL [Concomitant]
     Active Substance: SODIUM CHLORIDE
     Dosage: 10 ML, PRN
     Route: 042
     Dates: start: 20200909, end: 20200914
  83. NACL [Concomitant]
     Active Substance: SODIUM CHLORIDE
     Dosage: UNK
     Route: 042
     Dates: start: 20201014, end: 20201015
  84. FLUDARABINE [Concomitant]
     Active Substance: FLUDARABINE PHOSPHATE
     Dosage: 50 MG, ONCE/SINGLE
     Route: 042
     Dates: start: 20200902, end: 20200904
  85. NICOTINE. [Concomitant]
     Active Substance: NICOTINE
     Dosage: 14 MG 24 HR QD 1 PATCH
     Route: 062
     Dates: start: 20200725, end: 20200818
  86. GADOTERIDOL [Concomitant]
     Active Substance: GADOTERIDOL
     Indication: SCAN WITH CONTRAST
     Dosage: 19 ML, ONCE/SINGLE
     Route: 042
     Dates: start: 20200724, end: 20200724
  87. EMEND [Concomitant]
     Active Substance: APREPITANT
     Indication: PREMEDICATION
     Dosage: 150 MG/ 150 M LNS QD
     Route: 042
     Dates: start: 20200724, end: 20200724
  88. PRED FORTE [Concomitant]
     Active Substance: PREDNISOLONE ACETATE
     Indication: VISION BLURRED
     Dosage: 2 DROPS PER EYE, 4X DAILY
     Route: 047
     Dates: start: 20200725, end: 20200730
  89. DEXAMETHASONE SODIUM PHOSPHATE. [Suspect]
     Active Substance: DEXAMETHASONE SODIUM PHOSPHATE
     Indication: B-CELL LYMPHOMA
     Dosage: 40 MG, ONCE/SINGLE
     Route: 048
     Dates: start: 20200724
  90. DIFLUCAN [Concomitant]
     Active Substance: FLUCONAZOLE
     Dosage: 500 MG, QD
     Route: 048
     Dates: start: 20200820, end: 20200824
  91. ZOFRAN [Concomitant]
     Active Substance: ONDANSETRON HYDROCHLORIDE
     Dosage: 8 MG, Q8H PRN
     Route: 042
     Dates: start: 20200729, end: 20200729
  92. ZOFRAN [Concomitant]
     Active Substance: ONDANSETRON HYDROCHLORIDE
     Dosage: 8 MG, Q8H PRN
     Route: 048
     Dates: start: 20200812, end: 20200812
  93. TYLENOL [Concomitant]
     Active Substance: ACETAMINOPHEN
     Indication: BONE PAIN
     Dosage: 1000 MG, QD
     Route: 048
     Dates: start: 20200626, end: 20200626
  94. ZYLOPRIM [Concomitant]
     Active Substance: ALLOPURINOL
     Indication: PROPHYLAXIS
     Dosage: 300 MG, QD
     Route: 048
     Dates: start: 20200723, end: 20200727
  95. ZYLOPRIM [Concomitant]
     Active Substance: ALLOPURINOL
     Dosage: 300 MG, QD
     Route: 048
     Dates: start: 20200811, end: 20200813
  96. CYCLOPHOSPHAMIDE. [Concomitant]
     Active Substance: CYCLOPHOSPHAMIDE
     Indication: CHEMOTHERAPY
     Dosage: 490 MG, ONCE/SINGLE
     Route: 042
     Dates: start: 20200722, end: 20200722
  97. CYCLOPHOSPHAMIDE. [Concomitant]
     Active Substance: CYCLOPHOSPHAMIDE
     Dosage: 490 MG, ONCE/SINGLE
     Route: 042
     Dates: start: 20200902, end: 20200904
  98. METHOTREXATE. [Concomitant]
     Active Substance: METHOTREXATE
     Indication: PROPHYLAXIS
     Dosage: 12 MG, QD
     Route: 037
     Dates: start: 20200622, end: 20200622
  99. NACL [Concomitant]
     Active Substance: SODIUM CHLORIDE
     Indication: CHEMOTHERAPY
     Dosage: 1000 ML, QD
     Route: 042
     Dates: start: 20200707, end: 20200707
  100. FLUDARABINE [Concomitant]
     Active Substance: FLUDARABINE PHOSPHATE
     Dosage: 50 MG, ONCE/SINGLE
     Route: 065
     Dates: start: 20200903, end: 20200903
  101. LACTATED RINGERS SOLUTION [Concomitant]
     Active Substance: CALCIUM CHLORIDE\POTASSIUM CHLORIDE\SODIUM CHLORIDE\SODIUM LACTATE
     Indication: VOMITING
  102. KYTRIL [Concomitant]
     Active Substance: GRANISETRON HYDROCHLORIDE
     Indication: PROPHYLAXIS
     Dosage: 1000 UG, QD
     Route: 042
     Dates: start: 20200902, end: 20200904
  103. DECADRON [Concomitant]
     Active Substance: DEXAMETHASONE
     Dosage: 2 DROPS PER EYE, 4X PER DAY
     Route: 031
     Dates: start: 20200812, end: 20200813
  104. MIRALAX [Concomitant]
     Active Substance: POLYETHYLENE GLYCOL 3350
     Indication: CONSTIPATION
     Dosage: 17 G, QD PRN
     Route: 048
     Dates: start: 20200725, end: 20200725
  105. ROXICODONE [Concomitant]
     Active Substance: OXYCODONE HYDROCHLORIDE
     Indication: BACK PAIN
     Dosage: 10 MG
     Route: 048
     Dates: start: 20200726, end: 20200726
  106. BENADRYL [Concomitant]
     Active Substance: DIPHENHYDRAMINE HYDROCHLORIDE
     Indication: PREMEDICATION
     Dosage: 50 MG, ONCE/SINGLE
     Route: 048
     Dates: start: 20200909, end: 20200909
  107. KYMRIAH [Suspect]
     Active Substance: TISAGENLECLEUCEL
     Indication: B-CELL LYMPHOMA
     Dosage: 4.2_10E8 CELLS
     Route: 042
     Dates: start: 20200909, end: 20200909
  108. DIFLUCAN [Concomitant]
     Active Substance: FLUCONAZOLE
     Dosage: 200 MG, QD
     Route: 048
     Dates: start: 20200909, end: 20201104
  109. POTASSIUM CHLORIDE. [Concomitant]
     Active Substance: POTASSIUM CHLORIDE
     Indication: HYPOKALAEMIA
     Dosage: 20 MEQ, CONT
     Route: 042
     Dates: start: 20200725, end: 20200727
  110. ZOFRAN [Concomitant]
     Active Substance: ONDANSETRON HYDROCHLORIDE
     Dosage: 4 MG, QD
     Route: 042
     Dates: start: 20200626, end: 20200626
  111. ZOFRAN [Concomitant]
     Active Substance: ONDANSETRON HYDROCHLORIDE
     Dosage: 8 MG, Q8H PRN
     Route: 048
     Dates: start: 20200725, end: 20200725
  112. ZOFRAN [Concomitant]
     Active Substance: ONDANSETRON HYDROCHLORIDE
     Dosage: 8 MG, Q8H PRN
     Route: 048
     Dates: start: 20200830
  113. ZOFRAN [Concomitant]
     Active Substance: ONDANSETRON HYDROCHLORIDE
     Dosage: UNK
     Route: 065
     Dates: start: 20200930, end: 20200930
  114. TYLENOL [Concomitant]
     Active Substance: ACETAMINOPHEN
     Indication: BACK PAIN
     Dosage: 500 MG, Q6H, PRN
     Route: 048
     Dates: start: 202003, end: 20200811
  115. TYLENOL [Concomitant]
     Active Substance: ACETAMINOPHEN
     Indication: PAIN
     Dosage: 650 MG, Q6H PRN
     Route: 048
     Dates: start: 20200811, end: 20200812
  116. GRANIX [Concomitant]
     Active Substance: TBO-FILGRASTIM
     Indication: NEUTROPHIL COUNT DECREASED
     Dosage: 300 UG, EVERY EVENING
     Route: 058
     Dates: start: 20201002, end: 20201004
  117. GLYCOLAX [Concomitant]
     Active Substance: POLYETHYLENE GLYCOL 3350
     Indication: CONSTIPATION
     Dosage: 7 G PACKET, 2X DAILY PRN
     Route: 048
     Dates: start: 20201002, end: 20201028
  118. ATIVAN [Concomitant]
     Active Substance: LORAZEPAM
     Indication: NAUSEA
     Dosage: 1 MG, QD
     Route: 042
     Dates: start: 20200722, end: 20200722
  119. ZYLOPRIM [Concomitant]
     Active Substance: ALLOPURINOL
     Dosage: 300 MG, QD
     Route: 048
     Dates: start: 20200904, end: 20201023
  120. DILAUDID [Concomitant]
     Active Substance: HYDROMORPHONE HYDROCHLORIDE
     Indication: BACK PAIN
     Dosage: 0.5 MG, QD
     Route: 042
     Dates: start: 20200626, end: 20200626
  121. PHENERGAN [Concomitant]
     Active Substance: PROMETHAZINE HYDROCHLORIDE
     Indication: NAUSEA
     Dosage: 12.5 MG, QD
     Route: 042
     Dates: start: 20200722, end: 20200722
  122. NACL [Concomitant]
     Active Substance: SODIUM CHLORIDE
     Indication: VOMITING
     Dosage: 1000 ML, QD
     Route: 042
     Dates: start: 20200714, end: 20200714
  123. NACL [Concomitant]
     Active Substance: SODIUM CHLORIDE
     Indication: HYPOKALAEMIA
     Dosage: 10 ML
     Route: 042
     Dates: start: 20200723, end: 20200727
  124. NACL [Concomitant]
     Active Substance: SODIUM CHLORIDE
     Dosage: 500?1000 ML, DAILY PRN
     Route: 042
     Dates: start: 20200731
  125. NACL [Concomitant]
     Active Substance: SODIUM CHLORIDE
     Dosage: 1000 ML, CONT
     Route: 042
     Dates: start: 20201002, end: 20201005
  126. NACL [Concomitant]
     Active Substance: SODIUM CHLORIDE
     Dosage: 10 ML, PRN
     Route: 042
     Dates: start: 20201002, end: 20201005
  127. KYTRIL [Concomitant]
     Active Substance: GRANISETRON HYDROCHLORIDE
     Indication: PREMEDICATION
     Dosage: 1 MG, DAILYX3
     Route: 042
     Dates: start: 20200722, end: 20200722
  128. COMPAZINE [Concomitant]
     Active Substance: PROCHLORPERAZINE MALEATE
     Indication: VOMITING
     Dosage: 10 MG, Q4H PRN
     Route: 042
     Dates: start: 20200909, end: 20200914
  129. PLATINOL [Concomitant]
     Active Substance: CISPLATIN
     Dosage: 1000 MG/100 ML NS ONCE
     Route: 042
     Dates: start: 20200811, end: 20200812
  130. EMEND [Concomitant]
     Active Substance: APREPITANT
     Dosage: 150 MG/ 150 M LNS ONCE
     Route: 042
     Dates: start: 20200811, end: 20200811
  131. NEULASTA [Concomitant]
     Active Substance: PEGFILGRASTIM
     Indication: CHEMOTHERAPY
     Dosage: 6 MG, ONCE/SINGLE
     Route: 058
     Dates: start: 20200728, end: 20200728
  132. CEFDINIR. [Concomitant]
     Active Substance: CEFDINIR
     Indication: INFECTION PROPHYLAXIS
     Dosage: 300 MG, BID
     Route: 048
     Dates: start: 20200731, end: 20200806
  133. PROTONIX [Concomitant]
     Active Substance: PANTOPRAZOLE SODIUM
     Indication: NAUSEA
     Dosage: 40 MG, QD
     Route: 048
     Dates: start: 20200726, end: 20200727
  134. MAGNESIUM OXIDE. [Concomitant]
     Active Substance: MAGNESIUM OXIDE
     Indication: MINERAL SUPPLEMENTATION
  135. ZOFRAN [Concomitant]
     Active Substance: ONDANSETRON HYDROCHLORIDE
     Dosage: 8 MG, Q8H PRN
     Route: 042
     Dates: start: 20200726, end: 20200727
  136. ZARXIO [Concomitant]
     Active Substance: FILGRASTIM-SNDZ
     Indication: NEUTROPHIL COUNT DECREASED
     Dosage: 300 UG
     Route: 058
     Dates: start: 20201001, end: 20201001
  137. HEPARIN [Concomitant]
     Active Substance: HEPARIN SODIUM
     Dosage: 1500 UNITS, PRN
     Route: 042
     Dates: start: 20201005, end: 20201005
  138. MAGNESIUM SULFATE. [Concomitant]
     Active Substance: MAGNESIUM SULFATE
     Indication: HYPOMAGNESAEMIA
     Dosage: UNK4 G/100 ML
     Route: 042
     Dates: start: 20200811, end: 20200906
  139. LEVOFLOXACIN. [Concomitant]
     Active Substance: LEVOFLOXACIN
     Indication: PROPHYLAXIS
     Dosage: 500 MG, QD
     Route: 048
     Dates: start: 20200908, end: 20200908
  140. ASPIRIN. [Concomitant]
     Active Substance: ASPIRIN
     Indication: AORTIC ANEURYSM
     Dosage: 81 MG, QD
     Route: 048
     Dates: start: 2016, end: 20200723
  141. LACTATED RINGERS SOLUTION [Concomitant]
     Active Substance: CALCIUM CHLORIDE\POTASSIUM CHLORIDE\SODIUM CHLORIDE\SODIUM LACTATE
     Indication: NAUSEA
     Dosage: 500 ML, QD
     Route: 042
     Dates: start: 20200626, end: 20200626
  142. COMPAZINE [Concomitant]
     Active Substance: PROCHLORPERAZINE MALEATE
     Indication: NAUSEA
     Dosage: 10 MG, PRN
     Route: 042
     Dates: start: 20200724, end: 20200804
  143. GADOTERIDOL [Concomitant]
     Active Substance: GADOTERIDOL
     Dosage: 18 ML, ONCE/SINGLE
     Route: 042
     Dates: start: 20200807, end: 20200807
  144. DECADRON [Concomitant]
     Active Substance: DEXAMETHASONE
     Dosage: 40 MG, Q24H
     Route: 048
     Dates: start: 20200726, end: 20200727
  145. DECADRON [Concomitant]
     Active Substance: DEXAMETHASONE
     Dosage: 40 MG, ONCE/SINGLE
     Route: 048
     Dates: start: 20200811, end: 20200811
  146. LASIX [Concomitant]
     Active Substance: FUROSEMIDE
     Indication: PRODUCT USED FOR UNKNOWN INDICATION
     Dosage: 40 MG, Q12H
     Route: 042
     Dates: start: 20200812, end: 20200813
  147. SALINE [Concomitant]
     Active Substance: SODIUM CHLORIDE
     Indication: DENTAL DISORDER PROPHYLAXIS
     Dosage: 15 ML, 4X DAILY BEFORE MEAL AND NIGHTLY
     Route: 048
     Dates: start: 20200811, end: 20200813
  148. CISPLATIN. [Suspect]
     Active Substance: CISPLATIN
     Indication: B-CELL LYMPHOMA
     Dosage: 200 MG, CONTINUOUS INFUSION 24H
     Route: 042
     Dates: start: 20200724
  149. MORPHINE [Suspect]
     Active Substance: MORPHINE
     Indication: BONE PAIN
     Dosage: 1?2 TABS, Q4?6HRS PRN
     Route: 048
     Dates: start: 20200301, end: 20201022
  150. MS CONTIN [Concomitant]
     Active Substance: MORPHINE SULFATE
     Dosage: 15 MG, Q4H PRN
     Route: 048
     Dates: start: 20201014
  151. ZOFRAN [Concomitant]
     Active Substance: ONDANSETRON HYDROCHLORIDE
     Indication: CHEMOTHERAPY
     Dosage: 8 MG, QD
     Route: 042
     Dates: start: 20200721, end: 20200721
  152. ZOFRAN [Concomitant]
     Active Substance: ONDANSETRON HYDROCHLORIDE
     Dosage: 8 MG, Q8H PRN
     Route: 042
     Dates: start: 20200707, end: 20200804
  153. ZOFRAN [Concomitant]
     Active Substance: ONDANSETRON HYDROCHLORIDE
     Dosage: 8 MG, ONCE/SINGLE
     Route: 042
     Dates: start: 20200930, end: 20200930
  154. TYLENOL [Concomitant]
     Active Substance: ACETAMINOPHEN
     Indication: ABDOMINAL PAIN
     Dosage: 650 MG, ONCE/SINGLE
     Route: 048
     Dates: start: 20200930, end: 20200930
  155. ATIVAN [Concomitant]
     Active Substance: LORAZEPAM
     Dosage: 0.5 MG, NIGHTY AT BEDTIME
     Route: 048
     Dates: start: 20201008, end: 20201013
  156. METHOTREXATE. [Concomitant]
     Active Substance: METHOTREXATE
     Dosage: 12 MG, QD
     Route: 037
     Dates: start: 20200709, end: 20200709
  157. PHENERGAN [Concomitant]
     Active Substance: PROMETHAZINE HYDROCHLORIDE
     Dosage: 12.5 MG, Q6H PRN
     Route: 042
     Dates: start: 20200831, end: 20200831
  158. NACL [Concomitant]
     Active Substance: SODIUM CHLORIDE
     Indication: NAUSEA
     Dosage: 1000 ML, ONCE/SINGLE
     Route: 042
     Dates: start: 20200729, end: 20200729
  159. COMPAZINE [Concomitant]
     Active Substance: PROCHLORPERAZINE MALEATE
     Dosage: 10 MG, Q4H PRN
     Route: 048
     Dates: start: 20200909
  160. NEULASTA [Concomitant]
     Active Substance: PEGFILGRASTIM
     Dosage: 6 MG, ONCE/SINGLE
     Route: 058
     Dates: start: 20200814, end: 20200814

REACTIONS (1)
  - Confusional state [Recovered/Resolved]

NARRATIVE: CASE EVENT DATE: 20201014
